FAERS Safety Report 11191367 (Version 2)
Quarter: 2015Q2

REPORT INFORMATION
  Report Type: Spontaneous
  Country: PL (occurrence: PL)
  Receive Date: 20150616
  Receipt Date: 20150625
  Transmission Date: 20150821
  Serious: Yes (Hospitalization, Other)
  Sender: FDA-Public Use
  Company Number: PHHY2015PL070392

PATIENT
  Age: 36 Year
  Sex: Female
  Weight: 80 kg

DRUGS (1)
  1. EXTAVIA [Suspect]
     Active Substance: INTERFERON BETA-1B
     Indication: MULTIPLE SCLEROSIS
     Dosage: 250 UG, QOD
     Route: 058
     Dates: start: 20141028, end: 20150419

REACTIONS (5)
  - Hallucination [Unknown]
  - Anxiety [Unknown]
  - Psychotic disorder [Recovering/Resolving]
  - Aggression [Unknown]
  - Fear [Unknown]

NARRATIVE: CASE EVENT DATE: 20150419
